FAERS Safety Report 7919077-1 (Version None)
Quarter: 2011Q4

REPORT INFORMATION
  Report Type: 
  Country: None (occurrence: None)
  Receive Date: 20111116
  Receipt Date: 20111107
  Transmission Date: 20120403
  Serious: Yes (Congenital Anomaly)
  Sender: FDA-Public Use
  Company Number: CA-ASTRAZENECA-2011SE67471

PATIENT
  Sex: Male

DRUGS (6)
  1. METOCLOPRAMIDE [Concomitant]
     Route: 064
  2. CLONAZEPAM [Suspect]
     Route: 064
  3. SEROQUEL [Suspect]
     Route: 064
  4. EFFEXOR [Suspect]
     Route: 064
  5. WELLBUTRIN [Suspect]
     Route: 064
  6. ACETAMINOPHEN W/ CODEINE [Concomitant]
     Route: 064

REACTIONS (2)
  - TALIPES [None]
  - MATERNAL DRUGS AFFECTING FOETUS [None]
